FAERS Safety Report 9051955 (Version 2)
Quarter: 2013Q1

REPORT INFORMATION
  Report Type: Report from Study
  Country: CA (occurrence: CA)
  Receive Date: 20130207
  Receipt Date: 20130222
  Transmission Date: 20140127
  Serious: Yes (Other)
  Sender: FDA-Public Use
  Company Number: CA-JNJFOC-20130115132

PATIENT
  Age: 65 None
  Sex: Female
  Weight: 80.74 kg

DRUGS (7)
  1. REMICADE [Suspect]
     Indication: RHEUMATOID ARTHRITIS
     Route: 042
     Dates: start: 200905
  2. METHOTREXATE [Concomitant]
     Route: 058
  3. PLAQUENIL [Concomitant]
     Route: 065
  4. ATACAND PLUS [Concomitant]
     Route: 065
  5. VITAMIN D [Concomitant]
     Route: 065
  6. IBUPROFEN [Concomitant]
     Dosage: 200 MG TABS 2 Q4H PRN
     Route: 065
  7. FOLIC ACID [Concomitant]
     Route: 065

REACTIONS (5)
  - Haemoptysis [Not Recovered/Not Resolved]
  - Productive cough [Not Recovered/Not Resolved]
  - Ear pain [Not Recovered/Not Resolved]
  - Lower respiratory tract infection [Not Recovered/Not Resolved]
  - Pyrexia [Not Recovered/Not Resolved]
